FAERS Safety Report 6780938-0 (Version None)
Quarter: 2010Q2

REPORT INFORMATION
  Report Type: 
  Country: None (occurrence: None)
  Receive Date: 20100621
  Receipt Date: 20100428
  Transmission Date: 20101027
  Serious: No
  Sender: FDA-Public Use
  Company Number: US-JNJFOC-20100500359

PATIENT
  Age: 5 Year
  Sex: Female

DRUGS (1)
  1. INVEGA [Suspect]
     Indication: AUTISM
     Route: 048

REACTIONS (2)
  - DYSTONIA [None]
  - OFF LABEL USE [None]
